FAERS Safety Report 8189238-8 (Version None)
Quarter: 2012Q1

REPORT INFORMATION
  Report Type: 
  Country: None (occurrence: None)
  Receive Date: 20120306
  Receipt Date: 20120306
  Transmission Date: 20120608
  Serious: Yes (Other)
  Sender: FDA-Public Use
  Company Number: None

PATIENT
  Sex: Female
  Weight: 62.7 kg

DRUGS (5)
  1. SEROQUEL [Concomitant]
  2. ORTHO TRICYCLENE [Concomitant]
  3. BUPROPION HCL [Suspect]
     Indication: MAJOR DEPRESSION
     Dosage: 300 MG 1 PER DAY ORAL
     Route: 048
     Dates: start: 20100501, end: 20100701
  4. BUPROPION HCL [Suspect]
     Indication: GENERALISED ANXIETY DISORDER
     Dosage: 300 MG 1 PER DAY ORAL
     Route: 048
     Dates: start: 20100501, end: 20100701
  5. EFFEXOR [Concomitant]

REACTIONS (2)
  - PRODUCT SUBSTITUTION ISSUE [None]
  - DEPRESSION [None]
